FAERS Safety Report 16240357 (Version 1)
Quarter: 2019Q2

REPORT INFORMATION
  Report Type: Spontaneous
  Country: JP (occurrence: JP)
  Receive Date: 20190425
  Receipt Date: 20190425
  Transmission Date: 20190711
  Serious: Yes (Hospitalization, Other)
  Sender: FDA-Public Use
  Company Number: JP-REGENERON PHARMACEUTICALS, INC.-2019-22063

PATIENT

DRUGS (47)
  1. EYLEA [Suspect]
     Active Substance: AFLIBERCEPT
     Dosage: RIGHT, ONCE
     Route: 031
     Dates: start: 20160617, end: 20160617
  2. EYLEA [Suspect]
     Active Substance: AFLIBERCEPT
     Dosage: RIGHT, ONCE
     Route: 031
     Dates: start: 201612, end: 201612
  3. EYLEA [Suspect]
     Active Substance: AFLIBERCEPT
     Dosage: RIGHT, ONCE
     Route: 031
     Dates: start: 20170221, end: 20170221
  4. EYLEA [Suspect]
     Active Substance: AFLIBERCEPT
     Dosage: LEFT, ONCE
     Route: 031
     Dates: start: 20170509, end: 20170509
  5. EYLEA [Suspect]
     Active Substance: AFLIBERCEPT
     Dosage: 2 MG, ONCE
     Route: 031
     Dates: start: 20180529, end: 20180529
  6. EYLEA [Suspect]
     Active Substance: AFLIBERCEPT
     Dosage: BOTH EYES 2 MG, ONCE
     Route: 031
     Dates: start: 20181130, end: 20181130
  7. EYLEA [Suspect]
     Active Substance: AFLIBERCEPT
     Dosage: RIGHT, ONCE
     Route: 031
     Dates: start: 20150113, end: 20150113
  8. EYLEA [Suspect]
     Active Substance: AFLIBERCEPT
     Dosage: RIGHT, ONCE
     Route: 031
     Dates: start: 20150317, end: 20150317
  9. EYLEA [Suspect]
     Active Substance: AFLIBERCEPT
     Dosage: RIGHT, ONCE
     Route: 031
     Dates: start: 201611, end: 201611
  10. EYLEA [Suspect]
     Active Substance: AFLIBERCEPT
     Dosage: RIGHT, ONCE
     Route: 031
     Dates: start: 20170214, end: 20170214
  11. EYLEA [Suspect]
     Active Substance: AFLIBERCEPT
     Dosage: LEFT, ONCE
     Route: 031
     Dates: start: 20171025, end: 20171025
  12. EYLEA [Suspect]
     Active Substance: AFLIBERCEPT
     Dosage: 2 MG, ONCE, LEFT
     Route: 031
     Dates: start: 20180702, end: 20180702
  13. LUCENTIS [Concomitant]
     Active Substance: RANIBIZUMAB
     Indication: PRODUCT USED FOR UNKNOWN INDICATION
     Dosage: RIGHT EYE
     Dates: start: 20180717, end: 20180717
  14. EYLEA [Suspect]
     Active Substance: AFLIBERCEPT
     Indication: POLYPOIDAL CHOROIDAL VASCULOPATHY
     Dosage: RIGHT, ONCE
     Route: 031
     Dates: start: 20141216, end: 20141216
  15. EYLEA [Suspect]
     Active Substance: AFLIBERCEPT
     Dosage: RIGHT, ONCE
     Route: 031
     Dates: start: 20160819, end: 20160819
  16. EYLEA [Suspect]
     Active Substance: AFLIBERCEPT
     Dosage: LEFT, ONCE
     Route: 031
     Dates: start: 20170919, end: 20170919
  17. EYLEA [Suspect]
     Active Substance: AFLIBERCEPT
     Dosage: LEFT, ONCE
     Route: 031
     Dates: start: 20180220, end: 20180220
  18. EYLEA [Suspect]
     Active Substance: AFLIBERCEPT
     Dosage: LEFT, ONCE
     Route: 031
     Dates: start: 20180320, end: 20180320
  19. CRAVIT [Concomitant]
     Active Substance: LEVOFLOXACIN
     Indication: PREMEDICATION
     Dosage: RIGHT EYE
     Route: 047
     Dates: start: 20141115
  20. EYLEA [Suspect]
     Active Substance: AFLIBERCEPT
     Dosage: RIGHT, ONCE
     Route: 031
     Dates: start: 20160722, end: 20160722
  21. EYLEA [Suspect]
     Active Substance: AFLIBERCEPT
     Dosage: RIGHT, ONCE
     Route: 031
     Dates: start: 20170412, end: 20170412
  22. EYLEA [Suspect]
     Active Substance: AFLIBERCEPT
     Dosage: LEFT, ONCE
     Route: 031
     Dates: start: 201711, end: 201711
  23. EYLEA [Suspect]
     Active Substance: AFLIBERCEPT
     Dosage: BOTH EYES, 2 MG, ONCE
     Route: 031
     Dates: start: 20190205, end: 20190205
  24. BRONUCK [Concomitant]
     Active Substance: BROMFENAC SODIUM
     Indication: INFLAMMATION
     Dosage: RIGHT EYE
     Route: 047
  25. EYLEA [Suspect]
     Active Substance: AFLIBERCEPT
     Dosage: LEFT, ONCE
     Route: 031
     Dates: start: 20170628, end: 20170628
  26. EYLEA [Suspect]
     Active Substance: AFLIBERCEPT
     Dosage: LEFT, ONCE
     Route: 031
     Dates: start: 201801, end: 201801
  27. EYLEA [Suspect]
     Active Substance: AFLIBERCEPT
     Dosage: BOTH, 2 MG, ONCE
     Route: 031
     Dates: start: 20180926, end: 20180926
  28. EYLEA [Suspect]
     Active Substance: AFLIBERCEPT
     Indication: AGE-RELATED MACULAR DEGENERATION
     Dosage: RIGHT, ONCE
     Route: 031
     Dates: start: 20141118, end: 20141118
  29. EYLEA [Suspect]
     Active Substance: AFLIBERCEPT
     Dosage: UNK UNK, ONCE
     Route: 031
     Dates: start: 20150828, end: 20150828
  30. EYLEA [Suspect]
     Active Substance: AFLIBERCEPT
     Dosage: RIGHT, ONCE
     Route: 031
     Dates: start: 20160419, end: 20160419
  31. EYLEA [Suspect]
     Active Substance: AFLIBERCEPT
     Dosage: RIGHT, ONCE
     Route: 031
     Dates: start: 20160927, end: 20160927
  32. EYLEA [Suspect]
     Active Substance: AFLIBERCEPT
     Dosage: RIGHT, ONCE
     Route: 031
     Dates: start: 201610, end: 201610
  33. EYLEA [Suspect]
     Active Substance: AFLIBERCEPT
     Dosage: LEFT, 2 MG, ONCE
     Route: 031
     Dates: start: 20181026, end: 20181026
  34. EYLEA [Suspect]
     Active Substance: AFLIBERCEPT
     Dosage: RIGHT, ONCE
     Route: 031
     Dates: start: 20151117, end: 20151117
  35. EYLEA [Suspect]
     Active Substance: AFLIBERCEPT
     Dosage: RIGHT, ONCE
     Route: 031
     Dates: start: 20151225, end: 20151225
  36. EYLEA [Suspect]
     Active Substance: AFLIBERCEPT
     Dosage: RIGHT, ONCE
     Route: 031
     Dates: start: 20160517, end: 20160517
  37. EYLEA [Suspect]
     Active Substance: AFLIBERCEPT
     Dosage: LEFT, ONCE
     Route: 031
     Dates: start: 20170314, end: 20170314
  38. EYLEA [Suspect]
     Active Substance: AFLIBERCEPT
     Dosage: RIGHT, ONCE
     Route: 031
     Dates: start: 20170602, end: 20170602
  39. EYLEA [Suspect]
     Active Substance: AFLIBERCEPT
     Dosage: LEFT, ONCE
     Route: 031
     Dates: start: 20170804, end: 20170804
  40. EYLEA [Suspect]
     Active Substance: AFLIBERCEPT
     Dosage: 2 MG, ONCE, LEFT
     Route: 031
     Dates: start: 20180817, end: 20180817
  41. EYLEA [Suspect]
     Active Substance: AFLIBERCEPT
     Dosage: LEFT, 2 MG, ONCE
     Route: 031
     Dates: start: 20190108, end: 20190108
  42. GATIFLO [Concomitant]
     Active Substance: GATIFLOXACIN
     Indication: PREMEDICATION
     Dosage: RIGHT EYE
     Route: 047
     Dates: start: 20160704
  43. BERBESOLONE F [Concomitant]
     Active Substance: BETAMETHASONE\NEOMYCIN
     Indication: INFLAMMATION
     Dosage: RIGHT EYE
     Route: 047
     Dates: start: 20180729, end: 20180817
  44. EYLEA [Suspect]
     Active Substance: AFLIBERCEPT
     Dosage: RIGHT, ONCE
     Route: 031
     Dates: start: 20170830, end: 20170830
  45. EYLEA [Suspect]
     Active Substance: AFLIBERCEPT
     Dosage: RIGHT, ONCE
     Route: 031
     Dates: start: 20180124, end: 20180124
  46. EYLEA [Suspect]
     Active Substance: AFLIBERCEPT
     Dosage: LEFT, ONCE
     Route: 031
     Dates: start: 201804, end: 201804
  47. NEVANAC [Concomitant]
     Active Substance: NEPAFENAC
     Indication: INFLAMMATION
     Dosage: RIGHT EYE
     Route: 047
     Dates: start: 20180729, end: 20180831

REACTIONS (9)
  - Overdose [Unknown]
  - Intraocular lens implant [Unknown]
  - Cerebral infarction [Unknown]
  - Lens extraction [Unknown]
  - Detachment of retinal pigment epithelium [Not Recovered/Not Resolved]
  - Retinal tear [Recovered/Resolved]
  - Vitrectomy [Unknown]
  - Serous retinal detachment [Unknown]
  - Inappropriate schedule of product administration [Unknown]

NARRATIVE: CASE EVENT DATE: 20151117
